FAERS Safety Report 5380116-6 (Version None)
Quarter: 2007Q3

REPORT INFORMATION
  Report Type: 
  Country: None (occurrence: None)
  Receive Date: 20070706
  Receipt Date: 20070425
  Transmission Date: 20080115
  Serious: No
  Sender: FDA-Public Use
  Company Number: A0648732A

PATIENT
  Sex: Female

DRUGS (8)
  1. TYKERB [Suspect]
     Dosage: 5TAB UNKNOWN
     Route: 048
     Dates: start: 20070423
  2. LUNESTA [Suspect]
     Indication: INSOMNIA
     Dosage: 2MG PER DAY
     Route: 048
     Dates: start: 20070424, end: 20070424
  3. CELEBREX [Concomitant]
  4. POTASSIUM ACETATE [Concomitant]
  5. VESICARE [Concomitant]
  6. VITAMIN E [Concomitant]
  7. UNKNOWN MEDICATION [Concomitant]
  8. LOVENOX [Concomitant]

REACTIONS (3)
  - DIARRHOEA [None]
  - FEELING DRUNK [None]
  - ILL-DEFINED DISORDER [None]
